FAERS Safety Report 5284490-0 (Version None)
Quarter: 2007Q1

REPORT INFORMATION
  Report Type: 
  Country: None (occurrence: None)
  Receive Date: 20061228
  Receipt Date: 20060519
  Transmission Date: 20070707
  Serious: Yes (Other)
  Sender: FDA-Public Use
  Company Number: 145859USA

PATIENT
  Age: 51 Year
  Sex: Male

DRUGS (5)
  1. CLOZAPINE [Suspect]
     Indication: SCHIZOPHRENIA
     Dosage: 638 MG
     Dates: start: 20050201
  2. LAMOTRIGINE [Concomitant]
  3. VALPROATE SODIUM [Concomitant]
  4. CHLORPROMAZINE HCL [Concomitant]
  5. TRICOR [Concomitant]

REACTIONS (1)
  - CONVULSION [None]
